FAERS Safety Report 25652724 (Version 1)
Quarter: 2025Q3

REPORT INFORMATION
  Report Type: Report from Study
  Country: US (occurrence: US)
  Receive Date: 20250807
  Receipt Date: 20250807
  Transmission Date: 20251021
  Serious: Yes (Hospitalization, Other)
  Sender: ROCHE
  Company Number: US-ROCHE-10000356465

PATIENT
  Age: 0 Hour
  Sex: Male
  Weight: 3.728 kg

DRUGS (2)
  1. CELLCEPT [Suspect]
     Active Substance: MYCOPHENOLATE MOFETIL
     Indication: Lung transplant
     Route: 064
     Dates: start: 20160929, end: 20241025
  2. CELLCEPT [Suspect]
     Active Substance: MYCOPHENOLATE MOFETIL
     Route: 064
     Dates: start: 20210226, end: 20241029

REACTIONS (6)
  - Premature baby [Unknown]
  - Blood pressure increased [Unknown]
  - Nephrocalcinosis [Unknown]
  - Retinopathy of prematurity [Unknown]
  - Anaemia neonatal [Unknown]
  - Foetal exposure during pregnancy [Unknown]

NARRATIVE: CASE EVENT DATE: 20250420
